FAERS Safety Report 4781641-9 (Version None)
Quarter: 2005Q3

REPORT INFORMATION
  Report Type: 
  Country: None (occurrence: None)
  Receive Date: 20050927
  Receipt Date: 20050908
  Transmission Date: 20060218
  Serious: Yes (Other)
  Sender: FDA-Public Use
  Company Number: DE_050916903

PATIENT
  Age: 55 Year
  Sex: Female

DRUGS (4)
  1. HUMULIN N [Suspect]
     Indication: DIABETES MELLITUS INSULIN-DEPENDENT
     Dosage: 3 U/2 IN THE EVENING
     Dates: start: 20050803, end: 20050817
  2. HUMULIN R [Suspect]
     Indication: DIABETES MELLITUS INSULIN-DEPENDENT
     Dosage: 5 U/1 DAY
     Dates: start: 20050803, end: 20050907
  3. ACETYLSALICYLIC ACID SRT [Concomitant]
  4. LEVEMIR (INSULIN DETEMIR) [Concomitant]

REACTIONS (5)
  - ABASIA [None]
  - ARTHRALGIA [None]
  - MUCOSAL INFLAMMATION [None]
  - PSORIASIS [None]
  - THROMBOSIS [None]
